FAERS Safety Report 20506681 (Version 1)
Quarter: 2022Q1

REPORT INFORMATION
  Report Type: Spontaneous
  Country: FR (occurrence: FR)
  Receive Date: 20220223
  Receipt Date: 20220223
  Transmission Date: 20220423
  Serious: Yes (Other)
  Sender: FDA-Public Use
  Company Number: None

PATIENT
  Age: 45 Year
  Sex: Male

DRUGS (7)
  1. VENLAFAXINE HYDROCHLORIDE [Suspect]
     Active Substance: VENLAFAXINE HYDROCHLORIDE
     Dosage: 75MG/DAY IN COMBINATION WITH ALCOHOL, CHLORHYDRATE DE VENLAFAXINE, THERAPY START DATE AND END DATE :
     Route: 048
  2. MIANSERIN HYDROCHLORIDE [Suspect]
     Active Substance: MIANSERIN HYDROCHLORIDE
     Dosage: 10 MG DAILY IN COMBINATION WITH ALCOHOL, CHLORHYDRATE DE MIANSERINE, THERAPY START DATE AND END DATE
     Route: 048
  3. OXAZEPAM [Suspect]
     Active Substance: OXAZEPAM
     Dosage: 100 MILLIGRAM DAILY; 2 TABLETS OF 50 MG PER DAY, SCORED TABLET, THERAPY START DATE AND END DATE : NA
     Route: 048
  4. IMOVANE [Suspect]
     Active Substance: ZOPICLONE
     Dosage: 1 DOSAGE FORMS DAILY; 1 TAB/D AT BEDTIME, SCORED FILM-COATED TABLET
     Route: 048
  5. SUBUTEX [Suspect]
     Active Substance: BUPRENORPHINE HYDROCHLORIDE
     Dosage: UNSPECIFIED, THERAPY START DATE AND END DATE : NASK
     Route: 055
  6. SUBUTEX [Suspect]
     Active Substance: BUPRENORPHINE HYDROCHLORIDE
     Dosage: UNSPECIFIED, THERAPY START DATE AND END DATE : NASK
     Route: 045
  7. SUBUTEX [Suspect]
     Active Substance: BUPRENORPHINE HYDROCHLORIDE
     Dosage: UNSPECIFIED, THERAPY START DATE AND END DATE : NASK
     Route: 048

REACTIONS (2)
  - Intentional product misuse [Not Recovered/Not Resolved]
  - Drug dependence [Not Recovered/Not Resolved]
